FAERS Safety Report 21611378 (Version 2)
Quarter: 2022Q4

REPORT INFORMATION
  Report Type: Spontaneous
  Country: FR (occurrence: FR)
  Receive Date: 20221117
  Receipt Date: 20221202
  Transmission Date: 20230113
  Serious: Yes (Hospitalization)
  Sender: FDA-Public Use
  Company Number: FR-TEVA-2022-FR-2826288

PATIENT
  Sex: Male

DRUGS (14)
  1. MYCOPHENOLATE MOFETIL [Suspect]
     Active Substance: MYCOPHENOLATE MOFETIL
     Indication: Immunosuppressant drug therapy
     Dosage: 2000 MILLIGRAM DAILY;
     Route: 065
     Dates: start: 2020
  2. PREDNISOLONE [Suspect]
     Active Substance: PREDNISOLONE
     Indication: Immunosuppressant drug therapy
     Dosage: 10 MILLIGRAM DAILY;
     Route: 065
     Dates: start: 2020
  3. PREDNISOLONE [Suspect]
     Active Substance: PREDNISOLONE
     Dosage: INCREASED DOSE
     Route: 065
     Dates: start: 2021
  4. PREDNISOLONE [Suspect]
     Active Substance: PREDNISOLONE
     Dosage: DOSE WAS PROGRESSIVELY DECREASED BACK TO 10 MG/DAY
     Route: 065
     Dates: start: 2021
  5. TACROLIMUS [Suspect]
     Active Substance: TACROLIMUS
     Indication: Immunosuppressant drug therapy
     Dosage: 3.4 MILLIGRAM DAILY;
     Route: 065
     Dates: start: 2020
  6. CEFOTAXIME [Suspect]
     Active Substance: CEFOTAXIME SODIUM
     Indication: Evidence based treatment
     Route: 065
     Dates: start: 2021
  7. CEFOTAXIME [Suspect]
     Active Substance: CEFOTAXIME SODIUM
     Indication: Antibiotic therapy
  8. ELASOMERAN [Suspect]
     Active Substance: ELASOMERAN
     Indication: Immunisation
     Dosage: FIRST-DOSE OF IMMUNISATION
     Route: 065
     Dates: start: 202101
  9. ELASOMERAN [Suspect]
     Active Substance: ELASOMERAN
     Indication: COVID-19
  10. TOZINAMERAN [Suspect]
     Active Substance: TOZINAMERAN
     Indication: Immunisation
     Dosage: SECOND-DOSE OF IMMUNIZATION AFTER 4 WEEKS OF FIRST DOSE
     Route: 065
     Dates: start: 2021
  11. TOZINAMERAN [Suspect]
     Active Substance: TOZINAMERAN
     Indication: COVID-19
  12. CASIRIVIMAB\IMDEVIMAB [Suspect]
     Active Substance: CASIRIVIMAB\IMDEVIMAB
     Indication: COVID-19 pneumonia
     Route: 065
     Dates: start: 20210425
  13. ENOXAPARIN [Concomitant]
     Active Substance: ENOXAPARIN
     Indication: Anticoagulant therapy
     Route: 065
     Dates: start: 2021
  14. ENOXAPARIN [Concomitant]
     Active Substance: ENOXAPARIN
     Indication: Prophylaxis

REACTIONS (9)
  - COVID-19 pneumonia [Recovering/Resolving]
  - Acute respiratory failure [Recovering/Resolving]
  - Acute kidney injury [Recovering/Resolving]
  - Systemic inflammatory response syndrome [Recovering/Resolving]
  - Eosinopenia [Recovering/Resolving]
  - Lymphopenia [Recovered/Resolved]
  - Clostridium difficile colitis [Recovering/Resolving]
  - Drug ineffective [Recovering/Resolving]
  - Off label use [Unknown]

NARRATIVE: CASE EVENT DATE: 20210101
